FAERS Safety Report 6096530-X (Version None)
Quarter: 2009Q1

REPORT INFORMATION
  Report Type: 
  Country: None (occurrence: None)
  Receive Date: 20090225
  Receipt Date: 20090220
  Transmission Date: 20090719
  Serious: Yes (Other)
  Sender: FDA-Public Use
  Company Number: 2009SP004003

PATIENT
  Age: 52 Year
  Sex: Female

DRUGS (1)
  1. NOXAFIL [Suspect]
     Indication: ACUTE MYELOID LEUKAEMIA
     Dosage: 200 MG;TID

REACTIONS (2)
  - BLOOD DISORDER [None]
  - FUSARIUM INFECTION [None]
